FAERS Safety Report 9954921 (Version 2)
Quarter: 2014Q1

REPORT INFORMATION
  Report Type: Report from Study
  Country: US (occurrence: US)
  Receive Date: 20140304
  Receipt Date: 20140304
  Transmission Date: 20141002
  Serious: No
  Sender: FDA-Public Use
  Company Number: US-ABBVIE-13P-163-1054888-00

PATIENT
  Age: 51 Year
  Sex: Female

DRUGS (6)
  1. HUMIRA [Suspect]
     Indication: RHEUMATOID ARTHRITIS
     Dosage: INFUSIONS WHEN SHE WENT TO THE HOSPITAL
     Dates: start: 2005, end: 2007
  2. HUMIRA [Suspect]
  3. METHOTREXATE [Concomitant]
     Indication: RHEUMATOID ARTHRITIS
     Dosage: 6 PILLS WEEKLY
  4. LEUCOVORIN [Concomitant]
     Indication: RHEUMATOID ARTHRITIS
  5. INSULIN [Concomitant]
     Indication: BLOOD GLUCOSE INCREASED
     Dosage: 20 TO 25 UNITS DAILY
  6. LEVOTHYROXINE [Concomitant]
     Indication: HYPOTHYROIDISM

REACTIONS (6)
  - Pain [Unknown]
  - Drug ineffective [Unknown]
  - Joint swelling [Unknown]
  - Local swelling [Unknown]
  - Mobility decreased [Unknown]
  - Pain [Unknown]
